FAERS Safety Report 4656700-1 (Version None)
Quarter: 2005Q2

REPORT INFORMATION
  Report Type: 
  Country: None (occurrence: None)
  Receive Date: 20050331
  Receipt Date: 20050131
  Transmission Date: 20051028
  Serious: No
  Sender: FDA-Public Use
  Company Number: UK096697

PATIENT
  Sex: Female

DRUGS (1)
  1. NEULASTA [Suspect]
     Dosage: SC
     Route: 058

REACTIONS (3)
  - DERMATITIS ALLERGIC [None]
  - OEDEMA [None]
  - URTICARIA [None]
